FAERS Safety Report 21400652 (Version 1)
Quarter: 2022Q4

REPORT INFORMATION
  Report Type: Other
  Country: None (occurrence: IN)
  Receive Date: 20221003
  Receipt Date: 20221003
  Transmission Date: 20230113
  Serious: Yes (Other)
  Sender: FDA-Public Use
  Company Number: IN-Ajanta Pharma USA Inc.-2133392

PATIENT
  Sex: Male

DRUGS (2)
  1. LAMOTRIGINE [Suspect]
     Active Substance: LAMOTRIGINE
     Indication: Lennox-Gastaut syndrome
  2. VALPROATE SODIUM [Suspect]
     Active Substance: VALPROATE SODIUM

REACTIONS (1)
  - Acute generalised exanthematous pustulosis [Recovered/Resolved]
